FAERS Safety Report 11958944 (Version 1)
Quarter: 2016Q1

REPORT INFORMATION
  Report Type: Spontaneous
  Country: BR (occurrence: BR)
  Receive Date: 20160126
  Receipt Date: 20160126
  Transmission Date: 20160526
  Serious: Yes (Hospitalization)
  Sender: FDA-Public Use
  Company Number: BR-ROCHE-1682494

PATIENT
  Age: 65 Year
  Sex: Female
  Weight: 70 kg

DRUGS (3)
  1. ROHYPNOL [Suspect]
     Active Substance: FLUNITRAZEPAM
     Indication: MENTAL DISORDER
     Route: 065
     Dates: start: 20151124
  2. ROHYPNOL [Suspect]
     Active Substance: FLUNITRAZEPAM
     Indication: DEPRESSION
  3. RIVOTRIL [Suspect]
     Active Substance: CLONAZEPAM
     Indication: DEPRESSION
     Route: 065
     Dates: start: 201412

REACTIONS (2)
  - Suicide attempt [Unknown]
  - Tongue discolouration [Unknown]

NARRATIVE: CASE EVENT DATE: 20151209
